FAERS Safety Report 19299051 (Version 1)
Quarter: 2021Q2

REPORT INFORMATION
  Report Type: Spontaneous
  Country: PT (occurrence: PT)
  Receive Date: 20210524
  Receipt Date: 20210524
  Transmission Date: 20210717
  Serious: Yes (Hospitalization)
  Sender: FDA-Public Use
  Company Number: PT-PRINSTON PHARMACEUTICAL INC.-2021PRN00177

PATIENT
  Age: 45 Year
  Sex: Female

DRUGS (2)
  1. BUPROPION. [Suspect]
     Active Substance: BUPROPION
     Indication: WEIGHT DECREASED
     Route: 065
  2. NALTREXONE [Concomitant]
     Active Substance: NALTREXONE
     Indication: WEIGHT DECREASED
     Route: 065

REACTIONS (2)
  - Hypersensitivity [Recovered/Resolved]
  - Acute generalised exanthematous pustulosis [Recovered/Resolved]
